FAERS Safety Report 9553763 (Version 2)
Quarter: 2013Q4

REPORT INFORMATION
  Report Type: Spontaneous
  Country: US (occurrence: US)
  Receive Date: 20130925
  Receipt Date: 20131002
  Transmission Date: 20140711
  Serious: Yes (Death)
  Sender: FDA-Public Use
  Company Number: US-LUNDBECK-DKLU1093796

PATIENT
  Age: 10 Month
  Sex: Male

DRUGS (2)
  1. SABRIL (FOR ORAL SOLUTION) [Suspect]
     Indication: INFANTILE SPASMS
     Dates: start: 20130823
  2. SABRIL (FOR ORAL SOLUTION) [Suspect]
     Dates: start: 20130823

REACTIONS (1)
  - Nervous system disorder [Fatal]
